FAERS Safety Report 20767752 (Version 1)
Quarter: 2022Q2

REPORT INFORMATION
  Report Type: Spontaneous
  Country: CA (occurrence: CA)
  Receive Date: 20220429
  Receipt Date: 20220429
  Transmission Date: 20220721
  Serious: Yes (Other)
  Sender: FDA-Public Use
  Company Number: CA-SAMSUNG BIOEPIS-SB-2022-10099

PATIENT
  Age: 25 Year
  Sex: Female

DRUGS (3)
  1. INFLIXIMAB [Suspect]
     Active Substance: INFLIXIMAB
     Indication: Product used for unknown indication
     Dosage: UNKNOWN
     Route: 065
  2. INFLIXIMAB [Suspect]
     Active Substance: INFLIXIMAB
     Dosage: UNKNOWN
     Route: 065
  3. COMIRNATY [Suspect]
     Active Substance: TOZINAMERAN
     Indication: COVID-19 immunisation
     Dosage: SUSPENSION INTRAMUSCULAR?VIAL CONTAINS 6 DOSES OF 0.3 ML AFTER DILUTION
     Route: 065

REACTIONS (5)
  - Blood urine present [Recovered/Resolved]
  - Fatigue [Recovered/Resolved]
  - Flank pain [Recovered/Resolved]
  - Nephrolithiasis [Recovered/Resolved]
  - Pyrexia [Recovered/Resolved]
